FAERS Safety Report 18377099 (Version 1)
Quarter: 2020Q4

REPORT INFORMATION
  Report Type: Spontaneous
  Country: HR (occurrence: HR)
  Receive Date: 20201013
  Receipt Date: 20201013
  Transmission Date: 20210114
  Serious: Yes (Hospitalization, Other)
  Sender: FDA-Public Use
  Company Number: HR-JNJFOC-20201013697

PATIENT
  Age: 80 Year
  Sex: Male

DRUGS (12)
  1. FUROSEMIDE. [Concomitant]
     Active Substance: FUROSEMIDE
     Indication: HYPOTENSION
     Dosage: 40 MG, BID
  2. EPLERENONE. [Concomitant]
     Active Substance: EPLERENONE
     Indication: HYPOTENSION
     Dosage: 25 MG
  3. RAMIPRIL. [Concomitant]
     Active Substance: RAMIPRIL
     Dosage: 5 MG
  4. RIVAROXABAN [Suspect]
     Active Substance: RIVAROXABAN
     Indication: ATRIAL FIBRILLATION
     Dosage: 20 MG
     Route: 048
  5. AMIODARONE [Concomitant]
     Active Substance: AMIODARONE
  6. LOW MOLECULAR WEIGHT HEPARIN [Concomitant]
     Active Substance: UNSPECIFIED INGREDIENT
     Dosage: UNK
  7. DIGITALIS [Concomitant]
     Active Substance: DIGITALIS
     Dosage: UNK
  8. BISOPROLOL [Concomitant]
     Active Substance: BISOPROLOL
     Indication: HYPOTENSION
     Dosage: 2.5 MG
  9. BISOPROLOL [Concomitant]
     Active Substance: BISOPROLOL
     Indication: HYPOTENSION
     Dosage: 5 MG, IN THE MORNING
  10. FUROSEMIDE. [Concomitant]
     Active Substance: FUROSEMIDE
     Indication: HYPOTENSION
     Dosage: 40 MG, QD
  11. METHYL-DIGOXIN [Concomitant]
     Active Substance: METILDIGOXIN
     Dosage: 0.1 MG
  12. PYRAMIL [Concomitant]
     Indication: HYPOTENSION
     Dosage: 2.5 MG

REACTIONS (4)
  - Gastritis [Unknown]
  - Hiatus hernia [Unknown]
  - Gastrooesophageal reflux disease [Unknown]
  - Prostate cancer [Unknown]

NARRATIVE: CASE EVENT DATE: 201702
